FAERS Safety Report 6101832-4 (Version None)
Quarter: 2009Q1

REPORT INFORMATION
  Report Type: 
  Country: None (occurrence: None)
  Receive Date: 20090227
  Receipt Date: 20080529
  Transmission Date: 20090719
  Serious: Yes (Other)
  Sender: FDA-Public Use
  Company Number: 258968

PATIENT
  Age: 16 Year
  Sex: Male
  Weight: 56.1 kg

DRUGS (2)
  1. NUTROPIN AQ [Suspect]
     Indication: NOONAN SYNDROME
     Dosage: 5 MG, 7/WEEK, SUBCUTANEOUS
     Route: 058
     Dates: start: 20011004, end: 20080320
  2. NASONEX [Concomitant]

REACTIONS (1)
  - SCOLIOSIS [None]
